FAERS Safety Report 25606578 (Version 1)
Quarter: 2025Q3

REPORT INFORMATION
  Report Type: Report from Study
  Country: CA (occurrence: CA)
  Receive Date: 20250725
  Receipt Date: 20250725
  Transmission Date: 20251021
  Serious: Yes (Other)
  Sender: ABBVIE
  Company Number: CA-JNJFOC-20250722780

PATIENT
  Age: 71 Year
  Sex: Male

DRUGS (2)
  1. IMBRUVICA [Suspect]
     Active Substance: IBRUTINIB
     Indication: Chronic lymphocytic leukaemia
     Route: 048
  2. CALQUENCE [Suspect]
     Active Substance: ACALABRUTINIB
     Indication: Chronic lymphocytic leukaemia
     Route: 065

REACTIONS (1)
  - Cardiac disorder [Not Recovered/Not Resolved]
